FAERS Safety Report 16294267 (Version 1)
Quarter: 2019Q2

REPORT INFORMATION
  Report Type: Spontaneous
  Country: US (occurrence: US)
  Receive Date: 20190509
  Receipt Date: 20190509
  Transmission Date: 20190711
  Serious: No
  Sender: FDA-Public Use
  Company Number: US-ROCHE-2160108

PATIENT
  Sex: Male

DRUGS (1)
  1. ESBRIET [Suspect]
     Active Substance: PIRFENIDONE
     Indication: IDIOPATHIC PULMONARY FIBROSIS
     Dosage: TWO 267MG PILLS 2X^S A DAY ;ONGOING: NO
     Route: 048
     Dates: start: 2018

REACTIONS (2)
  - Photosensitivity reaction [Not Recovered/Not Resolved]
  - Diarrhoea [Unknown]
